FAERS Safety Report 17007548 (Version 1)
Quarter: 2019Q4

REPORT INFORMATION
  Report Type: Report from Study
  Country: None (occurrence: US)
  Receive Date: 20191108
  Receipt Date: 20191108
  Transmission Date: 20200122
  Serious: Yes (Hospitalization, Other)
  Sender: FDA-Public Use
  Company Number: US-ABBVIE-18K-163-2489736-00

PATIENT
  Age: 53 Year
  Sex: Male
  Weight: 111.23 kg

DRUGS (2)
  1. HUMIRA [Suspect]
     Active Substance: ADALIMUMAB
     Indication: PSORIASIS
     Route: 058
     Dates: start: 2018, end: 201809
  2. HUMIRA [Suspect]
     Active Substance: ADALIMUMAB
     Indication: PSORIATIC ARTHROPATHY
     Route: 058

REACTIONS (8)
  - Road traffic accident [Recovering/Resolving]
  - Post-traumatic pain [Unknown]
  - Deafness unilateral [Unknown]
  - Foot fracture [Unknown]
  - Ankle fracture [Unknown]
  - Peripheral swelling [Not Recovered/Not Resolved]
  - Lower limb fracture [Unknown]
  - Post procedural infection [Unknown]

NARRATIVE: CASE EVENT DATE: 2018
